FAERS Safety Report 24826889 (Version 1)
Quarter: 2025Q1

REPORT INFORMATION
  Report Type: Spontaneous
  Country: US (occurrence: US)
  Receive Date: 20250109
  Receipt Date: 20250109
  Transmission Date: 20250408
  Serious: Yes (Hospitalization)
  Sender: MYLAN
  Company Number: US-MYLANLABS-2024M1118240

PATIENT
  Age: 62 Year
  Sex: Female

DRUGS (2)
  1. TAMOXIFEN [Suspect]
     Active Substance: TAMOXIFEN
     Indication: Hereditary haemorrhagic telangiectasia
     Route: 065
     Dates: end: 202302
  2. OCTREOTIDE [Suspect]
     Active Substance: OCTREOTIDE
     Indication: Hereditary haemorrhagic telangiectasia
     Route: 065

REACTIONS (2)
  - Drug ineffective for unapproved indication [Unknown]
  - Off label use [Unknown]

NARRATIVE: CASE EVENT DATE: 20230201
